FAERS Safety Report 6156749-6 (Version None)
Quarter: 2009Q2

REPORT INFORMATION
  Report Type: 
  Country: None (occurrence: None)
  Receive Date: 20090410
  Receipt Date: 20090410
  Transmission Date: 20091009
  Serious: No
  Sender: FDA-Public Use
  Company Number: None

PATIENT
  Sex: Female
  Weight: 59.8748 kg

DRUGS (1)
  1. ESTRADIOL [Suspect]
     Indication: MENOPAUSE
     Dosage: 0.1 MG WEEKLY PATCH
     Dates: start: 20070101, end: 20080101

REACTIONS (2)
  - DEVICE FAILURE [None]
  - MENOPAUSAL SYMPTOMS [None]
